FAERS Safety Report 20539294 (Version 1)
Quarter: 2022Q1

REPORT INFORMATION
  Report Type: Report from Study
  Country: US (occurrence: US)
  Receive Date: 20220302
  Receipt Date: 20220302
  Transmission Date: 20220423
  Serious: Yes (Hospitalization)
  Sender: FDA-Public Use
  Company Number: US-JNJFOC-20210930524

PATIENT
  Age: 53 Year
  Sex: Male
  Weight: 87.1 kg

DRUGS (5)
  1. XARELTO [Interacting]
     Active Substance: RIVAROXABAN
     Indication: Deep vein thrombosis
     Route: 048
     Dates: end: 20210821
  2. XARELTO [Interacting]
     Active Substance: RIVAROXABAN
     Route: 048
  3. CLOBEX [CLOXACILLIN SODIUM] [Concomitant]
  4. FERROUS SULFATE [Concomitant]
     Active Substance: FERROUS SULFATE
  5. DELTASONE [Concomitant]
     Active Substance: PREDNISONE

REACTIONS (2)
  - Pericardial effusion [Recovered/Resolved]
  - Drug interaction [Recovered/Resolved]

NARRATIVE: CASE EVENT DATE: 20210821
